FAERS Safety Report 21138770 (Version 4)
Quarter: 2022Q3

REPORT INFORMATION
  Report Type: Spontaneous
  Country: US (occurrence: US)
  Receive Date: 20220727
  Receipt Date: 20220818
  Transmission Date: 20221027
  Serious: No
  Sender: FDA-Public Use
  Company Number: US-GLAXOSMITHKLINE-USCH2022026136

PATIENT
  Age: 73 Year
  Sex: Male

DRUGS (2)
  1. ALLI [Suspect]
     Active Substance: ORLISTAT
     Indication: Weight loss diet
     Dosage: UNK
     Dates: start: 20220712, end: 20220725
  2. ALLI [Suspect]
     Active Substance: ORLISTAT
     Dosage: UNK

REACTIONS (7)
  - Constipation [Unknown]
  - Neurological symptom [Unknown]
  - Dizziness [Unknown]
  - Vertigo [Unknown]
  - Drug ineffective [Unknown]
  - Suspected counterfeit product [Unknown]
  - Product complaint [Unknown]

NARRATIVE: CASE EVENT DATE: 20220101
